FAERS Safety Report 4644171-0 (Version None)
Quarter: 2005Q2

REPORT INFORMATION
  Report Type: 
  Country: None (occurrence: None)
  Receive Date: 20050425
  Receipt Date: 20050418
  Transmission Date: 20051028
  Serious: Yes (Hospitalization)
  Sender: FDA-Public Use
  Company Number: DZ-GLAXOSMITHKLINE-B0378883A

PATIENT
  Age: 35 Year
  Sex: Male

DRUGS (1)
  1. SERETIDE [Suspect]
     Indication: ASTHMA
     Dosage: 500U SEE DOSAGE TEXT
     Route: 055
     Dates: start: 20050402, end: 20050402

REACTIONS (1)
  - SUFFOCATION FEELING [None]
